FAERS Safety Report 7561205-4 (Version None)
Quarter: 2011Q2

REPORT INFORMATION
  Report Type: 
  Country: None (occurrence: None)
  Receive Date: 20110621
  Receipt Date: 20100525
  Transmission Date: 20111010
  Serious: No
  Sender: FDA-Public Use
  Company Number: US-ASTRAZENECA-2010SE24044

PATIENT
  Sex: Female

DRUGS (2)
  1. COMBIVENT [Concomitant]
  2. PULMICORT FLEXHALER [Suspect]
     Route: 055

REACTIONS (1)
  - DYSPNOEA [None]
